FAERS Safety Report 5506528-5 (Version None)
Quarter: 2007Q4

REPORT INFORMATION
  Report Type: 
  Country: None (occurrence: None)
  Receive Date: 20071101
  Receipt Date: 20071022
  Transmission Date: 20080405
  Serious: Yes (Other)
  Sender: FDA-Public Use
  Company Number: CHNY2007TR03538

PATIENT
  Sex: Male

DRUGS (1)
  1. OTRIVIN [Suspect]
     Dosage: NASAL
     Route: 045

REACTIONS (1)
  - DRUG DEPENDENCE [None]
